FAERS Safety Report 13407490 (Version 3)
Quarter: 2017Q3

REPORT INFORMATION
  Report Type: Report from Study
  Country: US (occurrence: US)
  Receive Date: 20170405
  Receipt Date: 20170706
  Transmission Date: 20171127
  Serious: No
  Sender: FDA-Public Use
  Company Number: PHEH2017US009937

PATIENT
  Sex: Male
  Weight: 96.15 kg

DRUGS (1)
  1. GILENYA [Suspect]
     Active Substance: FINGOLIMOD HYDROCHLORIDE
     Indication: MULTIPLE SCLEROSIS
     Dosage: 0.5 MG, QD
     Route: 048
     Dates: start: 20110415

REACTIONS (4)
  - Frustration tolerance decreased [Unknown]
  - Confusional state [Unknown]
  - Memory impairment [Unknown]
  - Feeling abnormal [Unknown]
